FAERS Safety Report 21896429 (Version 1)
Quarter: 2023Q1

REPORT INFORMATION
  Report Type: Other
  Country: SG (occurrence: SG)
  Receive Date: 20230123
  Receipt Date: 20230123
  Transmission Date: 20230418
  Serious: Yes (Hospitalization, Other)
  Sender: FDA-Public Use
  Company Number: SG-DENTSPLY-2023SCDP000016

PATIENT
  Age: 6 Year
  Sex: Male
  Weight: 18.6 kg

DRUGS (8)
  1. LIDOCAINE HYDROCHLORIDE AND EPINEPHRINE BITARTRATE [Suspect]
     Active Substance: EPINEPHRINE BITARTRATE\LIDOCAINE HYDROCHLORIDE
     Indication: Local anaesthesia
     Dosage: 1.8 MILLILITER (CUMULATIVE DOSE) LIDOCAINE 2% WITH ADRENALINE 1:80,000
  2. NITROUS OXIDE [Concomitant]
     Active Substance: NITROUS OXIDE
     Indication: General anaesthesia
     Dosage: UNK
  3. SEVOFLURANE [Concomitant]
     Active Substance: SEVOFLURANE
     Indication: General anaesthesia
     Dosage: END-TIDAL SEVOFLURANE CONCENTRATION OF BETWEEN 2 TO 2.4, AND A MINIMUM ALVEOLAR CONCENTRATION BETWEE
  4. SEVOFLURANE [Concomitant]
     Active Substance: SEVOFLURANE
     Dosage: 8%
  5. ATRACURIUM [Concomitant]
     Active Substance: ATRACURIUM
     Indication: General anaesthesia
     Dosage: UNK
     Route: 042
  6. FENTANYL [Concomitant]
     Active Substance: FENTANYL
     Indication: General anaesthesia
     Dosage: UNK
     Route: 042
  7. PROPOFOL [Concomitant]
     Active Substance: PROPOFOL
     Indication: General anaesthesia
     Dosage: UNK
     Route: 042
  8. OXYGEN [Concomitant]
     Active Substance: OXYGEN
     Indication: Product used for unknown indication
     Dosage: UNK

REACTIONS (2)
  - Facial paralysis [Recovered/Resolved]
  - Uvula deviation [Recovered/Resolved]
